FAERS Safety Report 18740268 (Version 3)
Quarter: 2021Q1

REPORT INFORMATION
  Report Type: Spontaneous
  Country: US (occurrence: US)
  Receive Date: 20210114
  Receipt Date: 20210323
  Transmission Date: 20210419
  Serious: No
  Sender: FDA-Public Use
  Company Number: US-ASTRAZENECA-2020SF70281

PATIENT
  Sex: Female
  Weight: 53.5 kg

DRUGS (3)
  1. BUDESONIDE AND FORMOTEROL AEROSOL [Suspect]
     Active Substance: BUDESONIDE\FORMOTEROL FUMARATE DIHYDRATE
     Indication: ASTHMA LATE ONSET
     Dosage: 80/45 MCG 120 DOSE INHALER
     Route: 055
  2. SYMBICORT [Suspect]
     Active Substance: BUDESONIDE\FORMOTEROL FUMARATE DIHYDRATE
     Indication: ASTHMA LATE ONSET
     Route: 055
  3. SYMBICORT [Suspect]
     Active Substance: BUDESONIDE\FORMOTEROL FUMARATE DIHYDRATE
     Indication: ASTHMA LATE ONSET
     Dosage: 80/4.5 MCG TWO PUFFSTWO TIMES A DAY
     Route: 055

REACTIONS (10)
  - Lung disorder [Recovered/Resolved]
  - Dysphonia [Recovered/Resolved]
  - Upper-airway cough syndrome [Unknown]
  - Feeling abnormal [Recovered/Resolved]
  - Product taste abnormal [Unknown]
  - Productive cough [Recovered/Resolved]
  - Intentional device misuse [Unknown]
  - Bronchitis [Recovered/Resolved]
  - Drug ineffective [Unknown]
  - Drug delivery system issue [Unknown]
